FAERS Safety Report 4353373-2 (Version None)
Quarter: 2004Q2

REPORT INFORMATION
  Report Type: 
  Country: None (occurrence: None)
  Receive Date: 20040505
  Receipt Date: 20040423
  Transmission Date: 20050107
  Serious: Yes (Hospitalization)
  Sender: FDA-Public Use
  Company Number: 200411701FR

PATIENT
  Age: 89 Year
  Sex: Female

DRUGS (6)
  1. LASILIX 40 MG [Suspect]
     Route: 048
  2. APROVEL [Suspect]
     Route: 048
  3. CELEBREX [Suspect]
     Route: 048
  4. DIGOXIN [Suspect]
     Route: 048
  5. TRAMADOL HCL [Concomitant]
     Route: 048
  6. PREVISCAN [Concomitant]
     Route: 048

REACTIONS (8)
  - ATRIOVENTRICULAR BLOCK SECOND DEGREE [None]
  - BLOOD PRESSURE SYSTOLIC INCREASED [None]
  - BRADYCARDIA [None]
  - CARDIOACTIVE DRUG LEVEL INCREASED [None]
  - DEHYDRATION [None]
  - DRUG LEVEL INCREASED [None]
  - GENERAL PHYSICAL HEALTH DETERIORATION [None]
  - INTERNATIONAL NORMALISED RATIO INCREASED [None]
